FAERS Safety Report 6080662-6 (Version None)
Quarter: 2009Q1

REPORT INFORMATION
  Report Type: 
  Country: None (occurrence: None)
  Receive Date: 20090217
  Receipt Date: 20090203
  Transmission Date: 20090719
  Serious: Yes (Other)
  Sender: FDA-Public Use
  Company Number: JP-GENENTECH-277120

PATIENT
  Sex: Male
  Weight: 58 kg

DRUGS (4)
  1. AVASTIN [Suspect]
     Indication: RECTAL CANCER
     Dosage: 290 MG, 2/WEEK
     Route: 041
     Dates: start: 20081111
  2. ELPLAT [Suspect]
     Indication: RECTAL CANCER
     Route: 041
  3. FLUOROURACIL [Suspect]
     Indication: RECTAL CANCER
     Route: 042
  4. CALCIUM LEVOFOLINATE [Concomitant]
     Indication: DRUG USE FOR UNKNOWN INDICATION

REACTIONS (1)
  - INTERSTITIAL LUNG DISEASE [None]
